FAERS Safety Report 14912089 (Version 2)
Quarter: 2018Q2

REPORT INFORMATION
  Report Type: Spontaneous
  Country: US (occurrence: US)
  Receive Date: 20180518
  Receipt Date: 20180521
  Transmission Date: 20180711
  Serious: No
  Sender: FDA-Public Use
  Company Number: US-PFIZER INC-2018198447

PATIENT
  Age: 48 Year
  Sex: Female

DRUGS (1)
  1. LEVOXYL [Suspect]
     Active Substance: LEVOTHYROXINE SODIUM
     Indication: HYPOTHYROIDISM
     Dosage: 112 UG, UNK
     Route: 048
     Dates: start: 20180508, end: 20180516

REACTIONS (7)
  - Skin disorder [Unknown]
  - Thirst [Not Recovered/Not Resolved]
  - Lip dry [Unknown]
  - Chapped lips [Unknown]
  - Peripheral swelling [Not Recovered/Not Resolved]
  - Feeling hot [Not Recovered/Not Resolved]
  - Eczema [Unknown]

NARRATIVE: CASE EVENT DATE: 201805
